FAERS Safety Report 16816269 (Version 1)
Quarter: 2019Q3

REPORT INFORMATION
  Report Type: Spontaneous
  Country: US (occurrence: US)
  Receive Date: 20190917
  Receipt Date: 20190917
  Transmission Date: 20191005
  Serious: No
  Sender: FDA-Public Use
  Company Number: US-RECKITT BENCKISER HEALTHCARE INT LIMITED-RB-91244-2018

PATIENT
  Age: 75 Year
  Sex: Male

DRUGS (1)
  1. MUCINEX MAXIMUM STRENGTH [Suspect]
     Active Substance: GUAIFENESIN
     Indication: PRODUCT USED FOR UNKNOWN INDICATION
     Dosage: TOK ONE TABLET ON 07-SEP-2018 AT 9:00AM AND PATIENT FORGOT THAT ALREADY TOOK FIRST DOSE AND TOOK ANO
     Route: 065
     Dates: start: 20180907

REACTIONS (1)
  - Accidental overdose [Unknown]
